FAERS Safety Report 20010791 (Version 2)
Quarter: 2021Q4

REPORT INFORMATION
  Report Type: Spontaneous
  Country: CA (occurrence: CA)
  Receive Date: 20211028
  Receipt Date: 20211103
  Transmission Date: 20220303
  Serious: Yes (Hospitalization, Other)
  Sender: FDA-Public Use
  Company Number: CA-TEVA-2021-CA-1968800

PATIENT
  Age: 80 Year
  Sex: Male

DRUGS (10)
  1. LOPERAMIDE [Suspect]
     Active Substance: LOPERAMIDE
     Indication: Diarrhoea
     Route: 065
  2. PANTOPRAZOLE MAGNESIUM [Suspect]
     Active Substance: PANTOPRAZOLE MAGNESIUM
     Indication: Gastrooesophageal reflux disease
     Dosage: 40 MILLIGRAM DAILY;
     Route: 048
     Dates: start: 20110722
  3. GEMCITABINE [Suspect]
     Active Substance: GEMCITABINE
     Indication: Pancreatic carcinoma metastatic
     Dosage: 1400MG/M2 ON DAYS 1, 8, AND 15 OF EACH 28-DAY CYCLE
     Route: 065
  4. PACLITAXEL [Suspect]
     Active Substance: PACLITAXEL
     Indication: Pancreatic carcinoma metastatic
     Dosage: 175MG/M2 ON DAYS 1, 8, AND 15 OF EACH 28-DAY CYCLE
     Route: 065
  5. COTAZYM [Suspect]
     Active Substance: PANCRELIPASE AMYLASE\PANCRELIPASE LIPASE\PANCRELIPASE PROTEASE
     Indication: Pancreatic enzyme abnormality
     Dosage: 4-6 TABLETS WITH MEALS AND 2-3 TABLETS WITH SNACKS
     Route: 065
  6. COTAZYM [Suspect]
     Active Substance: PANCRELIPASE AMYLASE\PANCRELIPASE LIPASE\PANCRELIPASE PROTEASE
     Indication: Diarrhoea
  7. PIPERACILLIN SODIUM\TAZOBACTAM SODIUM [Concomitant]
     Active Substance: PIPERACILLIN SODIUM\TAZOBACTAM SODIUM
     Indication: Febrile neutropenia
     Dosage: 13.5 GRAM DAILY;
     Route: 042
  8. AMOXICILLIN\CLAVULANATE POTASSIUM [Concomitant]
     Active Substance: AMOXICILLIN\CLAVULANATE POTASSIUM
     Indication: Febrile neutropenia
     Route: 048
  9. CIPROFLOXACIN [Concomitant]
     Active Substance: CIPROFLOXACIN
     Indication: Febrile neutropenia
     Dosage: 1000 MILLIGRAM DAILY; PRESCRIBED FOR 7 DAYS
     Route: 048
  10. SODIUM CHLORIDE [Concomitant]
     Active Substance: SODIUM CHLORIDE
     Indication: Fluid replacement
     Route: 042

REACTIONS (6)
  - Fatigue [Unknown]
  - Febrile neutropenia [Unknown]
  - Pancreatic enzyme abnormality [Recovering/Resolving]
  - Drug withdrawal syndrome [Recovering/Resolving]
  - Unmasking of previously unidentified disease [Recovering/Resolving]
  - Drug ineffective [Unknown]
